FAERS Safety Report 4618071-6 (Version None)
Quarter: 2005Q1

REPORT INFORMATION
  Report Type: 
  Country: None (occurrence: None)
  Receive Date: 20050322
  Receipt Date: 20050309
  Transmission Date: 20050727
  Serious: Yes (Hospitalization)
  Sender: FDA-Public Use
  Company Number: 2004097060

PATIENT
  Sex: Male

DRUGS (1)
  1. UNACID INJECTION (SULBACTAM, AMPICILLIN) [Suspect]
     Indication: BONE INFECTION
     Dosage: (3.222 MG) INTRAVENOUS
     Route: 042
     Dates: start: 20020320, end: 20020301

REACTIONS (13)
  - DIARRHOEA [None]
  - DISORIENTATION [None]
  - DIZZINESS [None]
  - FACE OEDEMA [None]
  - FALL [None]
  - FEELING DRUNK [None]
  - HEADACHE [None]
  - MEMORY IMPAIRMENT [None]
  - NAUSEA [None]
  - PARAESTHESIA [None]
  - READING DISORDER [None]
  - TREMOR [None]
  - VISUAL DISTURBANCE [None]
